FAERS Safety Report 15251740 (Version 1)
Quarter: 2018Q3

REPORT INFORMATION
  Report Type: Spontaneous
  Country: US (occurrence: US)
  Receive Date: 20180807
  Receipt Date: 20180807
  Transmission Date: 20181010
  Serious: No
  Sender: FDA-Public Use
  Company Number: US-009507513-1808USA003032

PATIENT
  Age: 12 Year

DRUGS (2)
  1. TEMOZOLOMIDE. [Suspect]
     Active Substance: TEMOZOLOMIDE
     Indication: GLIOSARCOMA
  2. BEVACIZUMAB. [Concomitant]
     Active Substance: BEVACIZUMAB

REACTIONS (2)
  - Product use in unapproved indication [Unknown]
  - Drug administered to patient of inappropriate age [Unknown]
